FAERS Safety Report 15321108 (Version 1)
Quarter: 2018Q3

REPORT INFORMATION
  Report Type: Spontaneous
  Country: US (occurrence: US)
  Receive Date: 20180827
  Receipt Date: 20180827
  Transmission Date: 20181010
  Serious: No
  Sender: FDA-Public Use
  Company Number: US-SA-2018SA236763

PATIENT
  Sex: Female

DRUGS (12)
  1. ALPRAZOLAM. [Concomitant]
     Active Substance: ALPRAZOLAM
  2. GABAPENTIN. [Concomitant]
     Active Substance: GABAPENTIN
  3. MONTELUKAST SODIUM. [Concomitant]
     Active Substance: MONTELUKAST SODIUM
  4. OMEPRAZOLE. [Concomitant]
     Active Substance: OMEPRAZOLE
  5. BACLOFEN. [Concomitant]
     Active Substance: BACLOFEN
  6. FAMOTIDINE. [Concomitant]
     Active Substance: FAMOTIDINE
  7. MELOXICAM. [Concomitant]
     Active Substance: MELOXICAM
  8. METHYLPREDNISOLONE. [Concomitant]
     Active Substance: METHYLPREDNISOLONE
  9. AUBAGIO [Suspect]
     Active Substance: TERIFLUNOMIDE
     Dosage: 1 DF, QD
     Route: 048
     Dates: start: 20180815
  10. ACETAMINOPHEN;CODEINE [Concomitant]
  11. TRAMADOL HCL [Concomitant]
     Active Substance: TRAMADOL HYDROCHLORIDE
  12. PERMETHRIN. [Concomitant]
     Active Substance: PERMETHRIN

REACTIONS (2)
  - Headache [Not Recovered/Not Resolved]
  - Alopecia [Not Recovered/Not Resolved]
